FAERS Safety Report 5135756-6 (Version None)
Quarter: 2006Q4

REPORT INFORMATION
  Report Type: 
  Country: None (occurrence: None)
  Receive Date: 20061020
  Receipt Date: 20061005
  Transmission Date: 20070319
  Serious: Yes (Hospitalization)
  Sender: FDA-Public Use
  Company Number: REM_00280_2006

PATIENT
  Age: 27 Year
  Sex: Female
  Weight: 122 kg

DRUGS (7)
  1. REMODULIN [Suspect]
     Indication: PULMONARY HYPERTENSION
     Dosage: 47 NG/KG/MIN CONTINUOUS IV
     Route: 042
     Dates: start: 20051007
  2. COUMADIN [Concomitant]
  3. DIGOXIN [Concomitant]
  4. ZYRTEC [Concomitant]
  5. ASCORBIC ACID [Concomitant]
  6. DEPO-PROVERA [Concomitant]
  7. FLONASE [Concomitant]

REACTIONS (9)
  - BACTERIAL INFECTION [None]
  - BRONCHITIS [None]
  - CENTRAL LINE INFECTION [None]
  - CULTURE URINE POSITIVE [None]
  - DIARRHOEA [None]
  - EPISTAXIS [None]
  - MALAISE [None]
  - PHARYNGOLARYNGEAL PAIN [None]
  - PNEUMONIA [None]
